FAERS Safety Report 25047602 (Version 2)
Quarter: 2025Q1

REPORT INFORMATION
  Report Type: Spontaneous
  Country: US (occurrence: US)
  Receive Date: 20250306
  Receipt Date: 20250307
  Transmission Date: 20250408
  Serious: No
  Sender: PFIZER
  Company Number: US-PFIZER INC-202500049060

PATIENT
  Age: 70 Year
  Sex: Female

DRUGS (1)
  1. EXEMESTANE [Suspect]
     Active Substance: EXEMESTANE

REACTIONS (5)
  - Condition aggravated [Unknown]
  - Joint stiffness [Unknown]
  - Insomnia [Unknown]
  - Fatigue [Unknown]
  - Arthralgia [Unknown]
